FAERS Safety Report 6589963-6 (Version None)
Quarter: 2010Q1

REPORT INFORMATION
  Report Type: 
  Country: None (occurrence: None)
  Receive Date: 20100219
  Receipt Date: 20100205
  Transmission Date: 20100710
  Serious: Yes (Hospitalization)
  Sender: FDA-Public Use
  Company Number: PHHY2010JP01027

PATIENT
  Age: 39 Year
  Sex: Female

DRUGS (4)
  1. LAMISIL [Suspect]
     Dosage: 125 MG DAILY
     Route: 048
     Dates: start: 20090523, end: 20091203
  2. OPALMON [Concomitant]
     Indication: COLLAGEN DISORDER
     Dosage: 10 MICROGRAM
     Route: 048
  3. PREDONINE [Concomitant]
     Indication: COLLAGEN DISORDER
     Dosage: 5 MG
     Route: 048
  4. SELBEX [Concomitant]

REACTIONS (5)
  - FACE OEDEMA [None]
  - FOCAL SEGMENTAL GLOMERULOSCLEROSIS [None]
  - OEDEMA PERIPHERAL [None]
  - PLEURAL EFFUSION [None]
  - PROTEIN URINE [None]
